FAERS Safety Report 9782870 (Version 1)
Quarter: 2013Q4

REPORT INFORMATION
  Report Type: Spontaneous
  Country: FR (occurrence: None)
  Receive Date: 20131220
  Receipt Date: 20131220
  Transmission Date: 20140711
  Serious: Yes (Hospitalization)
  Sender: FDA-Public Use
  Company Number: 1970064

PATIENT
  Age: 78 Year
  Sex: Female

DRUGS (4)
  1. CARBOPLATIN [Suspect]
     Indication: OVARIAN CANCER
     Route: 041
     Dates: start: 20110413, end: 20130413
  2. ENDOXAN [Concomitant]
  3. ZOPHREN [Concomitant]
  4. METHYLPREDNISOLONE MERCK [Concomitant]

REACTIONS (5)
  - Loss of consciousness [None]
  - Urinary incontinence [None]
  - Hypersensitivity [None]
  - Malaise [None]
  - Vomiting [None]
